FAERS Safety Report 23629788 (Version 1)
Quarter: 2024Q1

REPORT INFORMATION
  Report Type: Spontaneous
  Country: US (occurrence: US)
  Receive Date: 20240314
  Receipt Date: 20240314
  Transmission Date: 20240410
  Serious: No
  Sender: FDA-Public Use
  Company Number: US-CIPLA LTD.-2023US04882

PATIENT

DRUGS (11)
  1. SERTRALINE [Suspect]
     Active Substance: SERTRALINE HYDROCHLORIDE
     Indication: Anxiety
     Dosage: 50 MILLIGRAM, QD
     Route: 048
     Dates: start: 2017
  2. SERTRALINE [Suspect]
     Active Substance: SERTRALINE HYDROCHLORIDE
     Dosage: UNK, 100 MILLIGRAM
     Route: 065
     Dates: start: 2023
  3. SERTRALINE [Suspect]
     Active Substance: SERTRALINE HYDROCHLORIDE
     Dosage: 150 MILLIGRAM, QD (1 AND HALF TABLET)
     Route: 065
     Dates: start: 202306
  4. AMIODARONE [Concomitant]
     Active Substance: AMIODARONE
     Indication: Blood pressure abnormal
     Dosage: 200 MILLIGRAM, QD (1 TABLET ONCE A DAY)
     Route: 065
     Dates: start: 2019
  5. AMLODIPINE [Concomitant]
     Active Substance: AMLODIPINE BESYLATE
     Indication: Blood pressure abnormal
     Dosage: 10 MILLIGRAM, QD (1 TABLET ONCE A DAY)
     Route: 065
     Dates: start: 2019
  6. FUROSEMIDE [Concomitant]
     Active Substance: FUROSEMIDE
     Indication: Blood pressure abnormal
     Dosage: 40 MILLIGRAM, QD (1 TABLET ONCE A DAY)
     Route: 065
     Dates: start: 2019
  7. HYDRALAZINE [Concomitant]
     Active Substance: HYDRALAZINE HYDROCHLORIDE
     Indication: Blood pressure abnormal
     Dosage: 20 MILLIGRAM, QD (2 TABLETS ONCE A DAY)
     Route: 065
     Dates: start: 2021
  8. LEVOTHYROXINE [Concomitant]
     Active Substance: LEVOTHYROXINE\LEVOTHYROXINE SODIUM
     Indication: Thyroid disorder
     Dosage: 100 MILLIGRAM, QD (1 TABLET ONCE A DAY)
     Route: 065
     Dates: start: 2019
  9. XARELTO [Concomitant]
     Active Substance: RIVAROXABAN
     Indication: Anticoagulant therapy
     Dosage: 20 MILLIGRAM, QD (1 TABLET ONCE A DAY)
     Route: 065
     Dates: start: 2018
  10. ROSUVASTATIN [Concomitant]
     Active Substance: ROSUVASTATIN
     Indication: Blood cholesterol abnormal
     Dosage: 40 MILLIGRAM, QD (1 TABLET ONCE A DAY)
     Route: 065
     Dates: start: 2013
  11. VALSARTAN [Concomitant]
     Active Substance: VALSARTAN
     Indication: Blood pressure measurement
     Dosage: 320 MILLIGRAM, QD (1 TABLET ONCE A DAY)
     Route: 065
     Dates: start: 2021

REACTIONS (2)
  - Drug ineffective [Recovered/Resolved]
  - Insomnia [Not Recovered/Not Resolved]

NARRATIVE: CASE EVENT DATE: 20170101
